FAERS Safety Report 10064232 (Version 2)
Quarter: 2014Q2

REPORT INFORMATION
  Report Type: Spontaneous
  Country: PT (occurrence: None)
  Receive Date: 20140404
  Receipt Date: 20140409
  Transmission Date: 20141212
  Serious: Yes (Life-Threatening)
  Sender: FDA-Public Use
  Company Number: FK201401098

PATIENT
  Age: 27 Year
  Sex: Female
  Weight: 95 kg

DRUGS (2)
  1. AMPICILINA [Suspect]
     Indication: BACTERIAL DISEASE CARRIER
     Dosage: 2 GM, 1 IN 1 D, IV
     Route: 042
     Dates: start: 20140313, end: 20140313
  2. MISOPROSTOL (MISOPROSTOL) (MISOPROSTOL) [Concomitant]

REACTIONS (5)
  - Anaphylactic reaction [None]
  - Caesarean section [None]
  - Foetal death [None]
  - Maternal drugs affecting foetus [None]
  - Maternal exposure during pregnancy [None]
